FAERS Safety Report 9913977 (Version 1)
Quarter: 2014Q1

REPORT INFORMATION
  Report Type: Spontaneous
  Country: US (occurrence: None)
  Receive Date: 20140219
  Receipt Date: 20140219
  Transmission Date: 20141002
  Serious: No
  Sender: FDA-Public Use
  Company Number: None

PATIENT
  Age: 45 Year
  Sex: Female
  Weight: 122.47 kg

DRUGS (1)
  1. FETZIMA [Suspect]
     Indication: MAJOR DEPRESSION
     Dosage: ONE CAPSULE  ONCE DAILY  TAKEN BY MOUTH
     Route: 048
     Dates: start: 20140204, end: 20140217

REACTIONS (3)
  - Dyspnoea [None]
  - Bronchospasm [None]
  - Cough [None]
